FAERS Safety Report 5709290-6 (Version None)
Quarter: 2008Q2

REPORT INFORMATION
  Report Type: 
  Country: None (occurrence: None)
  Receive Date: 20080418
  Receipt Date: 20080409
  Transmission Date: 20081010
  Serious: Yes (Other)
  Sender: FDA-Public Use
  Company Number: FR-ASTRAZENECA-2007CG01617

PATIENT
  Age: 61 Year
  Sex: Male

DRUGS (3)
  1. RHINOCORT [Suspect]
     Indication: NASAL POLYPS
     Route: 045
     Dates: start: 20040101, end: 20070101
  2. RHINOCORT [Suspect]
     Route: 045
     Dates: start: 20080101
  3. TARKA LP [Concomitant]
     Indication: HYPERTENSION
     Dates: start: 20060101

REACTIONS (1)
  - OCULAR HYPERTENSION [None]
